FAERS Safety Report 4717967-4 (Version None)
Quarter: 2005Q3

REPORT INFORMATION
  Report Type: 
  Country: None (occurrence: None)
  Receive Date: 20050718
  Receipt Date: 20050128
  Transmission Date: 20060218
  Serious: No
  Sender: FDA-Public Use
  Company Number: 2005000222

PATIENT
  Age: 83 Year
  Sex: Male

DRUGS (2)
  1. TARCEVA [Suspect]
     Indication: NON-SMALL CELL LUNG CANCER
     Dosage: 150 MG (QD), ORAL
     Route: 048
     Dates: start: 20050125
  2. ACETAMINOPHEN W/ CODEINE [Concomitant]

REACTIONS (2)
  - DEPRESSION [None]
  - PAIN IN EXTREMITY [None]
